FAERS Safety Report 19426334 (Version 1)
Quarter: 2021Q2

REPORT INFORMATION
  Report Type: Spontaneous
  Country: US (occurrence: US)
  Receive Date: 20210617
  Receipt Date: 20210617
  Transmission Date: 20210717
  Serious: Yes (Hospitalization, Other)
  Sender: FDA-Public Use
  Company Number: US-AUROBINDO-AUR-APL-2021-024771

PATIENT
  Age: 15 Year
  Sex: Male

DRUGS (1)
  1. IBUPROFEN. [Suspect]
     Active Substance: IBUPROFEN
     Indication: MUSCLE STRAIN
     Dosage: 1000 MILLIGRAM 3?4 TIMES/DAY
     Route: 065

REACTIONS (8)
  - Liver abscess [Recovered/Resolved]
  - Fatigue [Recovered/Resolved]
  - Drug abuse [Recovered/Resolved]
  - Weight decreased [Recovered/Resolved]
  - Granulocytosis [Recovered/Resolved]
  - Decreased appetite [Recovered/Resolved]
  - Leukocytosis [Recovered/Resolved]
  - Gastric ulcer [Recovered/Resolved]
